FAERS Safety Report 12842365 (Version 3)
Quarter: 2016Q4

REPORT INFORMATION
  Report Type: Spontaneous
  Country: US (occurrence: US)
  Receive Date: 20161013
  Receipt Date: 20161222
  Transmission Date: 20170207
  Serious: Yes (Other)
  Sender: FDA-Public Use
  Company Number: US-BRISTOL-MYERS SQUIBB COMPANY-BMS-2016-083533

PATIENT
  Sex: Female

DRUGS (8)
  1. MAGNESIUM [Concomitant]
     Active Substance: MAGNESIUM
     Indication: PRODUCT USED FOR UNKNOWN INDICATION
     Route: 065
  2. TYLENOL [Concomitant]
     Active Substance: ACETAMINOPHEN
     Indication: PRODUCT USED FOR UNKNOWN INDICATION
     Route: 065
  3. DESYREL [Concomitant]
     Active Substance: TRAZODONE HYDROCHLORIDE
     Indication: PRODUCT USED FOR UNKNOWN INDICATION
     Route: 065
  4. VISTARIL [Concomitant]
     Active Substance: HYDROXYZINE PAMOATE
     Indication: PRODUCT USED FOR UNKNOWN INDICATION
     Route: 065
  5. SPRYCEL [Suspect]
     Active Substance: DASATINIB
     Indication: WHITE BLOOD CELL DISORDER
     Dosage: 100 MG, QD
     Route: 048
     Dates: start: 20150715
  6. CYMBALTA [Concomitant]
     Active Substance: DULOXETINE HYDROCHLORIDE
     Indication: PRODUCT USED FOR UNKNOWN INDICATION
     Route: 065
  7. CODEINE [Concomitant]
     Active Substance: CODEINE
     Indication: PRODUCT USED FOR UNKNOWN INDICATION
     Route: 065
  8. SPRYCEL [Suspect]
     Active Substance: DASATINIB
     Indication: FIBROUS DYSPLASIA OF BONE
     Route: 065

REACTIONS (5)
  - Pericardial effusion [Unknown]
  - Product use issue [Unknown]
  - Eyelid oedema [Unknown]
  - Swelling face [Unknown]
  - Dry skin [Unknown]
